FAERS Safety Report 20848771 (Version 2)
Quarter: 2022Q2

REPORT INFORMATION
  Report Type: Spontaneous
  Country: CH (occurrence: None)
  Receive Date: 20220519
  Receipt Date: 20220523
  Transmission Date: 20220721
  Serious: Yes (Other)
  Sender: FDA-Public Use
  Company Number: 2022A184845

PATIENT
  Age: 95 Year
  Sex: Female

DRUGS (24)
  1. CRESTOR [Suspect]
     Active Substance: ROSUVASTATIN CALCIUM
     Route: 048
     Dates: start: 2013, end: 20220324
  2. NEXIUM [Suspect]
     Active Substance: ESOMEPRAZOLE MAGNESIUM
     Route: 048
     Dates: start: 2013, end: 20220322
  3. NEXIUM [Suspect]
     Active Substance: ESOMEPRAZOLE MAGNESIUM
     Route: 048
     Dates: start: 20220322, end: 20220324
  4. CALCIPARINE [Suspect]
     Active Substance: HEPARIN CALCIUM
     Dosage: 5000 INTERNATIONAL UNIT, 2/DAY
     Route: 058
     Dates: start: 20220321
  5. CEFTRIAXONE [Suspect]
     Active Substance: CEFTRIAXONE
     Route: 042
     Dates: start: 20220325, end: 20220327
  6. CIPROFLOXACIN [Suspect]
     Active Substance: CIPROFLOXACIN
     Dosage: IN TOTAL
     Route: 065
     Dates: start: 20220324, end: 20220324
  7. FURADANTIN [Suspect]
     Active Substance: NITROFURANTOIN
     Route: 065
     Dates: start: 20220321, end: 20220324
  8. DAFALGAN [Suspect]
     Active Substance: ACETAMINOPHEN
     Route: 065
     Dates: start: 20220321, end: 20220327
  9. ASPIRIN [Concomitant]
     Active Substance: ASPIRIN
     Dates: start: 2013
  10. KONAKION [Concomitant]
     Active Substance: PHYTONADIONE
     Dates: start: 20220325
  11. CALCIUM [Concomitant]
     Active Substance: CALCIUM
     Dates: start: 2013
  12. CETIRIZINE [Concomitant]
     Active Substance: CETIRIZINE HYDROCHLORIDE
  13. FIG FRUIT OIL\SORBITOL [Concomitant]
     Active Substance: FIG FRUIT OIL\SORBITOL
     Dates: start: 20220321
  14. SERETIDE [Concomitant]
     Active Substance: FLUTICASONE PROPIONATE\SALMETEROL XINAFOATE
     Dates: start: 2013
  15. ATACAND [Concomitant]
     Active Substance: CANDESARTAN CILEXETIL
     Dates: start: 2013, end: 20220321
  16. LASIX [Concomitant]
     Active Substance: FUROSEMIDE
     Dates: start: 20220327, end: 20220328
  17. TEMESTA [Concomitant]
     Dates: end: 20220321
  18. MORPHINE [Concomitant]
     Active Substance: MORPHINE
  19. MAGNESIUM SULFATE [Concomitant]
     Active Substance: MAGNESIUM SULFATE
     Dates: start: 20220302, end: 20220321
  20. MAGNESIUM SULFATE [Concomitant]
     Active Substance: MAGNESIUM SULFATE
     Dates: start: 20220325, end: 20220325
  21. KCL [Concomitant]
     Active Substance: POTASSIUM CHLORIDE
     Dates: start: 20220322, end: 20220322
  22. KCL [Concomitant]
     Active Substance: POTASSIUM CHLORIDE
     Dates: start: 20220325, end: 20220328
  23. PERENTEROL [Concomitant]
     Active Substance: SACCHAROMYCES CEREVISIAE
     Dates: start: 20220325, end: 20220327
  24. UNSPECIFIED INGREDIENT [Concomitant]
     Active Substance: UNSPECIFIED INGREDIENT
     Dates: start: 20220321, end: 20220325

REACTIONS (1)
  - Cholestatic liver injury [Not Recovered/Not Resolved]

NARRATIVE: CASE EVENT DATE: 20220325
